FAERS Safety Report 23795499 (Version 5)
Quarter: 2024Q3

REPORT INFORMATION
  Report Type: Spontaneous
  Country: US (occurrence: US)
  Receive Date: 20240429
  Receipt Date: 20240911
  Transmission Date: 20241017
  Serious: No
  Sender: PFIZER
  Company Number: US-PFIZER INC-202400093080

PATIENT
  Age: 8 Year
  Sex: Male
  Weight: 25.4 kg

DRUGS (1)
  1. GENOTROPIN [Suspect]
     Active Substance: SOMATROPIN
     Indication: Hypopituitarism
     Dosage: 0.8 MG, DAILY
     Route: 058
     Dates: start: 202212

REACTIONS (2)
  - Device leakage [Unknown]
  - Incorrect dose administered by device [Unknown]
